FAERS Safety Report 8903881 (Version 2)
Quarter: 2017Q2

REPORT INFORMATION
  Report Type: Spontaneous
  Country: US (occurrence: US)
  Receive Date: 20121113
  Receipt Date: 20170414
  Transmission Date: 20170830
  Serious: No
  Sender: FDA-Public Use
  Company Number: US-ASTRAZENECA-2012SE83403

PATIENT
  Age: 62 Year
  Sex: Female

DRUGS (1)
  1. SEROQUEL XR [Suspect]
     Active Substance: QUETIAPINE FUMARATE
     Dosage: 150.0MG UNKNOWN
     Route: 048

REACTIONS (3)
  - Anxiety [Unknown]
  - Malaise [Unknown]
  - Nervousness [Unknown]
